FAERS Safety Report 9722360 (Version 1)
Quarter: 2013Q4

REPORT INFORMATION
  Report Type: Spontaneous
  Country: GB (occurrence: GB)
  Receive Date: 20131202
  Receipt Date: 20131202
  Transmission Date: 20140711
  Serious: Yes (Life-Threatening, Hospitalization, Other)
  Sender: FDA-Public Use
  Company Number: GB-JNJFOC-20131116863

PATIENT
  Age: 82 Year
  Sex: Male

DRUGS (11)
  1. XARELTO [Suspect]
     Indication: ARRHYTHMIA SUPRAVENTRICULAR
     Route: 048
     Dates: start: 201309, end: 20131025
  2. ALLOPURINOL [Concomitant]
     Route: 065
  3. AMIODARONE [Concomitant]
     Route: 048
  4. BISOPROLOL [Concomitant]
     Route: 048
  5. RAMIPRIL [Concomitant]
     Dosage: 1/1 DAYS
     Route: 048
  6. COLECALCIFEROL [Concomitant]
     Route: 048
  7. EPLERENONE [Concomitant]
     Dosage: 2 DAYS
     Route: 065
  8. FISH OIL [Concomitant]
     Route: 065
  9. LANSOPRAZOLE [Concomitant]
     Route: 065
  10. ALENDRONIC ACID [Concomitant]
     Route: 065
  11. BUMETANIDE [Concomitant]
     Indication: CARDIAC FAILURE
     Route: 048

REACTIONS (3)
  - Renal failure acute [Recovered/Resolved]
  - Haemoglobin decreased [Recovered/Resolved]
  - Gastrointestinal haemorrhage [Recovered/Resolved]
